FAERS Safety Report 13583493 (Version 1)
Quarter: 2017Q2

REPORT INFORMATION
  Report Type: Report from Study
  Country: None (occurrence: US)
  Receive Date: 20170526
  Receipt Date: 20170526
  Transmission Date: 20170830
  Serious: Yes (Other)
  Sender: FDA-Public Use
  Company Number: US-ABBVIE-17K-163-1928093-00

PATIENT
  Sex: Female

DRUGS (3)
  1. HUMIRA [Suspect]
     Active Substance: ADALIMUMAB
     Indication: PRODUCT USED FOR UNKNOWN INDICATION
     Route: 058
     Dates: end: 2016
  2. HUMIRA [Suspect]
     Active Substance: ADALIMUMAB
     Route: 058
     Dates: start: 2017, end: 2017
  3. METHOTREXATE. [Suspect]
     Active Substance: METHOTREXATE
     Indication: PRODUCT USED FOR UNKNOWN INDICATION
     Route: 065

REACTIONS (13)
  - Injury [Recovering/Resolving]
  - Pain [Recovering/Resolving]
  - Pyrexia [Recovering/Resolving]
  - Arthralgia [Not Recovered/Not Resolved]
  - Chromaturia [Recovering/Resolving]
  - Foot fracture [Unknown]
  - Hepatic enzyme increased [Recovered/Resolved]
  - Viral infection [Recovering/Resolving]
  - Dizziness [Recovering/Resolving]
  - Foot deformity [Recovering/Resolving]
  - Fall [Recovered/Resolved]
  - Foot operation [Recovering/Resolving]
  - Neuroma [Recovering/Resolving]

NARRATIVE: CASE EVENT DATE: 2015
